FAERS Safety Report 10421780 (Version 3)
Quarter: 2015Q2

REPORT INFORMATION
  Report Type: Spontaneous
  Country: IT (occurrence: IT)
  Receive Date: 20140901
  Receipt Date: 20150519
  Transmission Date: 20150821
  Serious: Yes (Hospitalization)
  Sender: FDA-Public Use
  Company Number: IT-ACCORD-025554

PATIENT
  Age: 58 Year
  Sex: Male

DRUGS (7)
  1. LISINOPRIL. [Suspect]
     Active Substance: LISINOPRIL
     Route: 048
     Dates: start: 20130921, end: 20130921
  2. BISOPROLOL [Suspect]
     Active Substance: BISOPROLOL
     Route: 048
     Dates: start: 20130921, end: 20130921
  3. ZARELIS [Suspect]
     Active Substance: VENLAFAXINE HYDROCHLORIDE
     Dosage: 10 DF TOTAL?STRENGTH: 150 MG
     Route: 048
     Dates: start: 20130921, end: 20130921
  4. FINASTERIDE. [Suspect]
     Active Substance: FINASTERIDE
     Route: 048
     Dates: start: 20130921, end: 20130921
  5. FRISIUM [Suspect]
     Active Substance: CLOBAZAM
     Dosage: 10 DF TOTAL
     Route: 048
     Dates: start: 20130921, end: 20130921
  6. AGGRENOX [Suspect]
     Active Substance: ASPIRIN\DIPYRIDAMOLE
     Dosage: 60 DF TOTAL?STENGTH: 200MG + 25 MG
     Route: 048
     Dates: start: 20130921, end: 20130921
  7. KEPPRA [Suspect]
     Active Substance: LEVETIRACETAM
     Dosage: 10 DF TOTAL?STRENGTH: 500 MG-60 FILM-COATED TABLETS
     Route: 048
     Dates: start: 20130921, end: 20130921

REACTIONS (4)
  - Loss of consciousness [Recovering/Resolving]
  - Vomiting [Recovering/Resolving]
  - Drug abuse [Unknown]
  - Intentional self-injury [Unknown]

NARRATIVE: CASE EVENT DATE: 20130921
